FAERS Safety Report 24559131 (Version 1)
Quarter: 2024Q4

REPORT INFORMATION
  Report Type: Spontaneous
  Country: TR (occurrence: TR)
  Receive Date: 20241029
  Receipt Date: 20241029
  Transmission Date: 20250115
  Serious: Yes (Other)
  Sender: CHEPLAPHARM
  Company Number: TR-CHEPLA-2024013583

PATIENT
  Age: 20 Year
  Sex: Male

DRUGS (7)
  1. OLANZAPINE [Suspect]
     Active Substance: OLANZAPINE
     Indication: Aggression
     Dosage: DAILY DOSE: 20 MILLIGRAM
  2. RISPERIDONE [Concomitant]
     Active Substance: RISPERIDONE
     Dosage: DAILY DOSE: 4 MILLIGRAM
  3. RISPERIDONE [Concomitant]
     Active Substance: RISPERIDONE
  4. RISPERIDONE [Concomitant]
     Active Substance: RISPERIDONE
     Dosage: DAILY DOSE: 500 MILLIGRAM
  5. HALOPERIDOL DECANOATE [Concomitant]
     Active Substance: HALOPERIDOL DECANOATE
     Dosage: DAILY DOSE: 30
  6. PALIPERIDONE PALMITATE [Concomitant]
     Active Substance: PALIPERIDONE PALMITATE
     Dosage: DAILY DOSE: 15
  7. CLOZAPINE [Concomitant]
     Active Substance: CLOZAPINE

REACTIONS (7)
  - Hallucination, visual [Unknown]
  - Delusion [Unknown]
  - Abnormal behaviour [Unknown]
  - Therapeutic product effect decreased [Unknown]
  - Hypoacusis [Unknown]
  - Skin lesion [Unknown]
  - Peutz-Jeghers syndrome [Unknown]
